FAERS Safety Report 4938833-5 (Version None)
Quarter: 2006Q1

REPORT INFORMATION
  Report Type: 
  Country: None (occurrence: None)
  Receive Date: 20060306
  Receipt Date: 20060222
  Transmission Date: 20060701
  Serious: Yes (Hospitalization, Other)
  Sender: FDA-Public Use
  Company Number: 2006026641

PATIENT
  Sex: Female
  Weight: 99.7913 kg

DRUGS (3)
  1. NORVASC [Suspect]
     Indication: HYPERTENSION
  2. LASIX [Concomitant]
  3. POTASSIUM (POTASSIUM) [Concomitant]

REACTIONS (10)
  - ARTHRITIS [None]
  - CELLULITIS [None]
  - CHEST PAIN [None]
  - CONDITION AGGRAVATED [None]
  - EMPHYSEMA [None]
  - ERYTHEMA [None]
  - INFECTION [None]
  - OEDEMA PERIPHERAL [None]
  - OSTEOPOROSIS [None]
  - PNEUMONIA [None]
